FAERS Safety Report 5910221-4 (Version None)
Quarter: 2008Q4

REPORT INFORMATION
  Report Type: 
  Country: None (occurrence: None)
  Receive Date: 20081007
  Receipt Date: 20071019
  Transmission Date: 20090506
  Serious: No
  Sender: FDA-Public Use
  Company Number: US-ASTRAZENECA-2007UW24415

PATIENT
  Age: 58 Year
  Sex: Female
  Weight: 78.9 kg

DRUGS (4)
  1. ARIMIDEX [Suspect]
     Indication: BREAST CANCER
     Route: 048
  2. DIOVAN [Concomitant]
     Route: 048
  3. CATAPRES [Concomitant]
     Route: 048
  4. MULTI-VITAMINS [Concomitant]
     Route: 048

REACTIONS (1)
  - VERTIGO [None]
